FAERS Safety Report 9540768 (Version 1)
Quarter: 2013Q3

REPORT INFORMATION
  Report Type: Spontaneous
  Country: IL (occurrence: IL)
  Receive Date: 20130920
  Receipt Date: 20130920
  Transmission Date: 20140515
  Serious: Yes (Hospitalization, Other)
  Sender: FDA-Public Use
  Company Number: PHHY2013IL103806

PATIENT
  Age: 78 Year
  Sex: Male
  Weight: 82 kg

DRUGS (8)
  1. METFORMIN [Suspect]
     Indication: DIABETES MELLITUS
     Dosage: 850 MG, QD
  2. AUGMENTIN [Suspect]
     Indication: PAROTITIS
  3. ASPIRIN [Concomitant]
     Dosage: 75 MG/DAY
  4. PRAVASTATIN [Concomitant]
     Dosage: 20 MG/DAY
  5. AMLODIPINE [Concomitant]
     Dosage: 5 MG/DAY
  6. ATENOLOL [Concomitant]
     Dosage: 100 MG/DAY
  7. CANDESARTAN [Concomitant]
     Dosage: 16 MG/DAY
  8. HYDROCHLOROTHIAZIDE [Concomitant]
     Dosage: 12.5 MG/DAY

REACTIONS (9)
  - Cholestatic liver injury [Recovered/Resolved]
  - Fatigue [Unknown]
  - Nausea [Unknown]
  - Vomiting [Unknown]
  - Diarrhoea [Unknown]
  - Decreased appetite [Unknown]
  - Abdominal pain [Unknown]
  - Pruritus [Unknown]
  - Jaundice [Unknown]
